FAERS Safety Report 17205496 (Version 3)
Quarter: 2022Q4

REPORT INFORMATION
  Report Type: Report from Study
  Country: US (occurrence: None)
  Receive Date: 20191227
  Receipt Date: 20221212
  Transmission Date: 20230113
  Serious: Yes (Hospitalization)
  Sender: FDA-Public Use
  Company Number: US-ROCHE-2506349

PATIENT
  Age: 59 Year
  Sex: Male
  Weight: 84 kg

DRUGS (4)
  1. ATEZOLIZUMAB [Suspect]
     Active Substance: ATEZOLIZUMAB
     Indication: Colon cancer stage III
     Dosage: ON DAY 1. ON 27/AUG/2019, MOST RECENT DOSE OF ATEZOLIZUMAB WAS ADMINISTERED TO PATIENT.
     Route: 041
     Dates: start: 20180724
  2. OXALIPLATIN [Suspect]
     Active Substance: OXALIPLATIN
     Indication: Colon cancer stage III
     Dosage: OVER 2 HOURS ON DAY 1. ON 27/AUG/2019, MOST RECENT DOSE OF OXALIPLATIN WAS ADMINISTERED TO PATIENT.
     Route: 042
     Dates: start: 20180724
  3. LEUCOVORIN CALCIUM [Suspect]
     Active Substance: LEUCOVORIN CALCIUM
     Indication: Colon cancer stage III
     Dosage: OVER 2 HOURS ON DAY 1. ON 27/AUG/2019, MOST RECENT DOSE OF LEUCOVORIN CALCIUM WAS ADMINISTERED TO PA
     Route: 042
     Dates: start: 20180724
  4. FLUOROURACIL [Suspect]
     Active Substance: FLUOROURACIL
     Indication: Colon cancer stage III
     Dosage: ON DAY 1 FOLLOWED BY 2400MG/M2 OVER 46 HOURS DAYS 1-3. ON 27/AUG/2019, MOST RECENT DOSE OF 5-FLUOROU
     Route: 040
     Dates: start: 20180724

REACTIONS (2)
  - Atrial fibrillation [Recovered/Resolved]
  - Chest pain [Recovered/Resolved]

NARRATIVE: CASE EVENT DATE: 20190307
